FAERS Safety Report 13611881 (Version 1)
Quarter: 2017Q2

REPORT INFORMATION
  Report Type: Spontaneous
  Country: US (occurrence: US)
  Receive Date: 20170605
  Receipt Date: 20170605
  Transmission Date: 20170830
  Serious: No
  Sender: FDA-Public Use
  Company Number: None

PATIENT
  Age: 47 Year
  Sex: Female
  Weight: 63 kg

DRUGS (1)
  1. MAGNESIUM SULFATE. [Suspect]
     Active Substance: MAGNESIUM SULFATE
     Dosage: ?          OTHER FREQUENCY:ONCE A MONTH;?
     Route: 041
     Dates: start: 20170120, end: 20170523

REACTIONS (2)
  - Dysgeusia [None]
  - Infusion related reaction [None]

NARRATIVE: CASE EVENT DATE: 20170524
